FAERS Safety Report 8580937-2 (Version None)
Quarter: 2012Q3

REPORT INFORMATION
  Report Type: 
  Country: None (occurrence: None)
  Receive Date: 20120727
  Receipt Date: 20120103
  Transmission Date: 20120928
  Serious: Yes (Death)
  Sender: FDA-Public Use
  Company Number: B0773596A

PATIENT
  Age: 64 Year
  Sex: Male

DRUGS (5)
  1. RANITIDINE HYDROCHLORIDE [Suspect]
     Dosage: ORAL
     Route: 048
  2. VENLAFAXINE HYDROCHLORIDE [Suspect]
     Dosage: ORAL
     Route: 048
  3. NITROGLYCERIN [Suspect]
     Dosage: ORAL
     Route: 048
  4. SALICYLATE (FORMULATION UNKNOWN) (GENERIC) (SALICYLATE) [Suspect]
     Dosage: ORAL
     Route: 048
  5. METOPROLOL SUCCINATE EXTENDED RELEASE [Suspect]
     Dosage: ORAL
     Route: 048

REACTIONS (1)
  - COMPLETED SUICIDE [None]
